FAERS Safety Report 8449400 (Version 2)
Quarter: 2012Q4

REPORT INFORMATION
  Report Type: 
  Country: US (occurrence: US)
  Receive Date: 20120308
  Receipt Date: 20121015
  Transmission Date: 20130627
  Serious: Yes (Hospitalization, Other)
  Sender: FDA-Public Use
  Company Number: US-ELI_LILLY_AND_COMPANY-US200910007692

PATIENT
  Age: 62 Year
  Sex: Female

DRUGS (6)
  1. ZYPREXA [Suspect]
     Indication: SCHIZOPHRENIA
     Dosage: 1 D/F, UNK
  2. TRIAVIL [Concomitant]
  3. AMITRIPTYLINE [Concomitant]
  4. HALDOL [Concomitant]
  5. LOTENSION [Concomitant]
  6. DILTIAZEM [Concomitant]

REACTIONS (26)
  - Acute myocardial infarction [Unknown]
  - Atrial fibrillation [Unknown]
  - Supraventricular tachycardia [Unknown]
  - Hypertension [Unknown]
  - Type 1 diabetes mellitus [Unknown]
  - Dizziness [Recovered/Resolved]
  - Neuropathy peripheral [Unknown]
  - Acute coronary syndrome [Unknown]
  - Coronary artery disease [Unknown]
  - Prinzmetal angina [Unknown]
  - Hypertrophic cardiomyopathy [Unknown]
  - Metabolic syndrome [Unknown]
  - Ear infection [Unknown]
  - Gastrooesophageal reflux disease [Unknown]
  - Hypoglycaemia [Unknown]
  - Peptic ulcer [Unknown]
  - Proteinuria [Recovered/Resolved]
  - Bronchitis [Recovered/Resolved]
  - Haematuria [Unknown]
  - Vaginal infection [Recovered/Resolved]
  - Dental caries [Unknown]
  - Visual impairment [Unknown]
  - Vitreous floaters [Unknown]
  - Sleep apnoea syndrome [Unknown]
  - Blood alkaline phosphatase [Unknown]
  - Dyslipidaemia [Unknown]
